FAERS Safety Report 8550111-4 (Version None)
Quarter: 2012Q3

REPORT INFORMATION
  Report Type: 
  Country: None (occurrence: None)
  Receive Date: 20120730
  Receipt Date: 20120727
  Transmission Date: 20120928
  Serious: Yes (Death)
  Sender: FDA-Public Use
  Company Number: AU-B.I. PHARMACEUTICALS,INC./RIDGEFIELD-2012-AU-01263AU

PATIENT
  Sex: Male
  Weight: 78 kg

DRUGS (8)
  1. PRADAXA [Suspect]
     Indication: ATRIAL FIBRILLATION
     Dosage: 220 MG
     Dates: start: 20120113
  2. ASPIRIN [Concomitant]
     Dosage: 100 MG
     Dates: start: 20081014
  3. ONGLYZA [Concomitant]
     Dosage: 5 MG
     Dates: start: 20120110
  4. PRADAXA [Suspect]
     Indication: CEREBROVASCULAR ACCIDENT PROPHYLAXIS
     Dates: start: 20110718, end: 20120113
  5. MICARDIS [Concomitant]
     Dates: start: 20120307
  6. SIGMAXIN [Concomitant]
     Dosage: 0.0625 MG
     Dates: start: 20080909
  7. DIAMICRON MR [Concomitant]
     Dosage: 60 MG
     Dates: start: 20120530
  8. LIPIDIL [Concomitant]
     Dosage: 96 MG
     Dates: start: 20081014

REACTIONS (1)
  - CARDIAC ARREST [None]
